FAERS Safety Report 5729071-7 (Version None)
Quarter: 2008Q2

REPORT INFORMATION
  Report Type: 
  Country: None (occurrence: None)
  Receive Date: 20080505
  Receipt Date: 20080505
  Transmission Date: 20081010
  Serious: Yes (Other)
  Sender: FDA-Public Use
  Company Number: None

PATIENT
  Age: 17 Year
  Sex: Female
  Weight: 60.782 kg

DRUGS (3)
  1. WELLBUTRIN XL [Suspect]
     Indication: ATTENTION DEFICIT/HYPERACTIVITY DISORDER
     Dosage: 300MG DAILY P.O.
     Route: 048
     Dates: start: 20080319, end: 20080320
  2. WELLBUTRIN XL [Suspect]
     Indication: DYSTHYMIC DISORDER
     Dosage: 300MG DAILY P.O.
     Route: 048
     Dates: start: 20080319, end: 20080320
  3. FOCALIN ER [Concomitant]

REACTIONS (3)
  - CONFUSIONAL STATE [None]
  - FEAR [None]
  - HALLUCINATION [None]
